FAERS Safety Report 22305412 (Version 2)
Quarter: 2023Q2

REPORT INFORMATION
  Report Type: Spontaneous
  Country: US (occurrence: US)
  Receive Date: 20230510
  Receipt Date: 20230525
  Transmission Date: 20230722
  Serious: Yes (Hospitalization)
  Sender: FDA-Public Use
  Company Number: US-UCBSA-2023007102

PATIENT
  Age: 60 Year
  Sex: Female
  Weight: 63.492 kg

DRUGS (2)
  1. CIMZIA [Suspect]
     Active Substance: CERTOLIZUMAB PEGOL
     Indication: Psoriatic arthropathy
     Dosage: 200 MILLIGRAM, EV 2 WEEKS(QOW) (1 SYRINGE)
     Route: 058
     Dates: start: 202301
  2. CIMZIA [Suspect]
     Active Substance: CERTOLIZUMAB PEGOL
     Indication: Psoriasis

REACTIONS (4)
  - Fall [Unknown]
  - Rash [Unknown]
  - Sinusitis [Unknown]
  - Hypertension [Unknown]

NARRATIVE: CASE EVENT DATE: 20230208
